FAERS Safety Report 9936886 (Version 1)
Quarter: 2014Q1

REPORT INFORMATION
  Report Type: Spontaneous
  Country: US (occurrence: None)
  Receive Date: 20140115
  Receipt Date: 20140115
  Transmission Date: 20141002
  Serious: Yes (Hospitalization)
  Sender: FDA-Public Use
  Company Number: 2013US002564

PATIENT
  Age: 63 Year
  Sex: Female

DRUGS (16)
  1. ICLUSIG (PONATINIB) TABLET, 45MG [Suspect]
     Indication: CHRONIC MYELOID LEUKAEMIA
     Route: 048
     Dates: start: 20130912
  2. TEMAZEPAM (TEMAZEPAM) [Concomitant]
  3. LISINOPRIL (LISINOPRIL) [Concomitant]
  4. SYNTHROID (LEVOTHYROXINE SODIUM) [Suspect]
  5. PANTOPRAZOLE (PANTOPRAZOLE) [Concomitant]
  6. MAGNESIUM (MAGNESIUM) [Concomitant]
  7. TRIAMTERENE PLUS HCTZ (HYDROCHLOROTHIAZIDE, TRIAMTERENE) [Concomitant]
  8. VALACYCLOVIR HYDROCHLORIDE) [Concomitant]
  9. TRAMADOL (TRAMADOL) [Concomitant]
  10. CEFPODOXIME (CEFPODOXIME) [Concomitant]
  11. KLOR-CON (POTASSIUM CHLORIDE) [Concomitant]
  12. RITUXIMAB (RITUXIMAB) [Concomitant]
  13. CYCLOPHOSPHAMIDE (FRACTIONATED) (CYCLOPHOSPHAMIDE) [Concomitant]
  14. VINCRISTINE (VINCRISTINE) [Concomitant]
  15. ADRIAMYCIN (ADRIAMYCIN) [Concomitant]
  16. DEXAMETHASONE (DEXAMETHASONE) [Concomitant]

REACTIONS (2)
  - Hypertension [None]
  - Dry skin [None]
